FAERS Safety Report 18559061 (Version 1)
Quarter: 2020Q4

REPORT INFORMATION
  Report Type: Spontaneous
  Country: US (occurrence: US)
  Receive Date: 20201126
  Receipt Date: 20201126
  Transmission Date: 20210114
  Serious: Yes (Disabling, Other)
  Sender: FDA-Public Use
  Company Number: None

PATIENT
  Age: 59 Year
  Sex: Female
  Weight: 60.3 kg

DRUGS (11)
  1. KRILL OIL [Concomitant]
     Active Substance: DIETARY SUPPLEMENT\KRILL OIL
  2. FAMOTIDINE. [Concomitant]
     Active Substance: FAMOTIDINE
  3. MULTIVITAMIN [Concomitant]
     Active Substance: VITAMINS
  4. LIDOCAINE 5% OINTMENT [Concomitant]
  5. LORATADINE. [Concomitant]
     Active Substance: LORATADINE
  6. CLONAZEPAM. [Suspect]
     Active Substance: CLONAZEPAM
     Indication: GENERALISED ANXIETY DISORDER
     Dates: start: 20190315, end: 20200715
  7. TURMERIC [Concomitant]
     Active Substance: HERBALS\TURMERIC
  8. VIT D [Concomitant]
     Active Substance: VITAMIN D NOS
  9. VALSARTAN. [Concomitant]
     Active Substance: VALSARTAN
  10. MSM [Concomitant]
     Active Substance: DIMETHYL SULFONE
  11. VALIUM [Concomitant]
     Active Substance: DIAZEPAM

REACTIONS (1)
  - Withdrawal syndrome [None]

NARRATIVE: CASE EVENT DATE: 20200715
